FAERS Safety Report 25315252 (Version 1)
Quarter: 2025Q2

REPORT INFORMATION
  Report Type: Spontaneous
  Country: US (occurrence: US)
  Receive Date: 20250514
  Receipt Date: 20250514
  Transmission Date: 20250717
  Serious: No
  Sender: MERCK SHARP & DOHME LLC
  Company Number: US-009507513-2284558

PATIENT
  Sex: Female

DRUGS (18)
  1. WINREVAIR [Suspect]
     Active Substance: SOTATERCEPT-CSRK
  2. WINREVAIR [Suspect]
     Active Substance: SOTATERCEPT-CSRK
  3. WINREVAIR [Suspect]
     Active Substance: SOTATERCEPT-CSRK
  4. WINREVAIR [Suspect]
     Active Substance: SOTATERCEPT-CSRK
  5. FUROSEMIDE [Concomitant]
     Active Substance: FUROSEMIDE
  6. ADEMPAS [Concomitant]
     Active Substance: RIOCIGUAT
  7. NEILMED SINUS RINSE [Concomitant]
     Active Substance: SODIUM BICARBONATE\SODIUM CHLORIDE
  8. HYDROCHLOROTHIAZIDE [Concomitant]
     Active Substance: HYDROCHLOROTHIAZIDE
  9. SENNA-S [Concomitant]
     Active Substance: DOCUSATE SODIUM\SENNOSIDES
  10. ALEVE [Concomitant]
     Active Substance: NAPROXEN SODIUM
  11. AMLODIPINE BESYLATE [Concomitant]
     Active Substance: AMLODIPINE BESYLATE
  12. VITAMIN D3 [Concomitant]
     Active Substance: CHOLECALCIFEROL
  13. ALBUTEROL SULFATE [Concomitant]
     Active Substance: ALBUTEROL SULFATE
  14. CALCIUM [Concomitant]
     Active Substance: CALCIUM
  15. OXYGEN [Concomitant]
     Active Substance: OXYGEN
  16. GABAPENTIN [Concomitant]
     Active Substance: GABAPENTIN
  17. ONDANSETRON [Concomitant]
     Active Substance: ONDANSETRON
  18. WELLBUTRIN SR [Concomitant]
     Active Substance: BUPROPION HYDROCHLORIDE

REACTIONS (3)
  - Oesophageal pain [Unknown]
  - Headache [Unknown]
  - Diarrhoea [Unknown]
